FAERS Safety Report 18533448 (Version 1)
Quarter: 2020Q4

REPORT INFORMATION
  Report Type: Spontaneous
  Country: CL (occurrence: CL)
  Receive Date: 20201123
  Receipt Date: 20201123
  Transmission Date: 20210114
  Serious: No
  Sender: FDA-Public Use
  Company Number: CL-DRREDDYS-USA/CHI/20/0128794

PATIENT
  Age: 49 Year
  Sex: Female

DRUGS (2)
  1. FERRIC CARBOXYMALTOSE [Suspect]
     Active Substance: FERRIC CARBOXYMALTOSE
     Indication: ANAEMIA
  2. IMATINIB MESYLATE TABLETS [Suspect]
     Active Substance: IMATINIB MESYLATE
     Indication: CHRONIC MYELOID LEUKAEMIA

REACTIONS (6)
  - Iron deficiency [Unknown]
  - Paraesthesia [Unknown]
  - Blood parathyroid hormone increased [Unknown]
  - Hypophosphataemia [Recovered/Resolved]
  - Anaemia [Unknown]
  - Insomnia [Unknown]
